FAERS Safety Report 24278006 (Version 1)
Quarter: 2024Q3

REPORT INFORMATION
  Report Type: Spontaneous
  Country: US (occurrence: US)
  Receive Date: 20240903
  Receipt Date: 20240903
  Transmission Date: 20241016
  Serious: No
  Sender: NOVARTIS
  Company Number: US-002147023-NVSC2024US176516

PATIENT
  Age: 92 Year
  Sex: Female

DRUGS (2)
  1. VOTRIENT [Suspect]
     Active Substance: PAZOPANIB HYDROCHLORIDE
     Indication: Histiocytic sarcoma
     Dosage: 800 MG, QD
     Route: 048
     Dates: start: 202407
  2. COTELLIC [Suspect]
     Active Substance: COBIMETINIB
     Indication: Product used for unknown indication
     Dosage: 1 TIME A DAY ON DAYS 1 TO 21 DAYS OF EACH 28 DAY CYCLE
     Route: 065

REACTIONS (4)
  - Taste disorder [Unknown]
  - Blood pressure diastolic increased [Unknown]
  - Diarrhoea [Unknown]
  - Abdominal pain upper [Unknown]

NARRATIVE: CASE EVENT DATE: 20240829
